FAERS Safety Report 8360713-6 (Version None)
Quarter: 2012Q2

REPORT INFORMATION
  Report Type: 
  Country: None (occurrence: None)
  Receive Date: 20120515
  Receipt Date: 20120507
  Transmission Date: 20120825
  Serious: Yes (Hospitalization)
  Sender: FDA-Public Use
  Company Number: US-ABBOTT-12P-163-0933202-00

PATIENT
  Sex: Female
  Weight: 105.78 kg

DRUGS (10)
  1. IMITRAMINE HCL [Concomitant]
     Indication: INSOMNIA
  2. HUMIRA [Suspect]
     Indication: RHEUMATOID ARTHRITIS
     Dates: start: 20110901
  3. METHOTREXATE [Concomitant]
     Indication: RHEUMATOID ARTHRITIS
  4. TRIAMTERENE AND HYDROCHLOROTHIAZIDE [Concomitant]
     Indication: FLUID RETENTION
  5. ALLOPURINOL [Concomitant]
     Indication: GOUT
  6. PRILOSEC [Concomitant]
     Indication: REFLUX GASTRITIS
  7. ASPIRIN [Concomitant]
     Indication: CARDIOVASCULAR EVENT PROPHYLAXIS
  8. PREDNISONE TAB [Concomitant]
     Indication: RHEUMATOID ARTHRITIS
  9. LEVOTHYROXINE SODIUM [Concomitant]
     Indication: THYROID DISORDER
  10. ZOLPIDEM TARTRATE [Concomitant]
     Indication: INSOMNIA

REACTIONS (3)
  - LOSS OF CONSCIOUSNESS [None]
  - HYPOTENSION [None]
  - ANKLE FRACTURE [None]
